FAERS Safety Report 16475718 (Version 1)
Quarter: 2019Q2

REPORT INFORMATION
  Report Type: Spontaneous
  Country: US (occurrence: US)
  Receive Date: 20190625
  Receipt Date: 20190625
  Transmission Date: 20190711
  Serious: Yes (Other)
  Sender: FDA-Public Use
  Company Number: PHEH2019US025647

PATIENT
  Sex: Male
  Weight: 44.9 kg

DRUGS (1)
  1. KYMRIAH [Suspect]
     Active Substance: TISAGENLECLEUCEL
     Indication: ACUTE LYMPHOCYTIC LEUKAEMIA
     Dosage: 200000 OT, ONCE/SINGLE
     Route: 042
     Dates: start: 20180321

REACTIONS (5)
  - Clostridium difficile infection [Unknown]
  - Pyrexia [Unknown]
  - Haematochezia [Unknown]
  - Diarrhoea [Unknown]
  - Cytokine release syndrome [Unknown]

NARRATIVE: CASE EVENT DATE: 20180323
